FAERS Safety Report 12238864 (Version 1)
Quarter: 2016Q2

REPORT INFORMATION
  Report Type: Spontaneous
  Country: CA (occurrence: CA)
  Receive Date: 20160405
  Receipt Date: 20160405
  Transmission Date: 20160815
  Serious: Yes (Hospitalization)
  Sender: FDA-Public Use
  Company Number: CA-BAYER-2016-063164

PATIENT
  Age: 74 Year
  Sex: Female

DRUGS (7)
  1. APIXABAN [Concomitant]
     Active Substance: APIXABAN
  2. POTASSIUM [Concomitant]
     Active Substance: POTASSIUM
  3. FUROSEMIDE. [Concomitant]
     Active Substance: FUROSEMIDE
  4. DIGOXIN [DIGOXIN] [Concomitant]
     Active Substance: DIGOXIN
  5. OPSUMIT [Concomitant]
     Active Substance: MACITENTAN
  6. RABEPRAZOLE [Concomitant]
     Active Substance: RABEPRAZOLE
  7. ADEMPAS [Suspect]
     Active Substance: RIOCIGUAT
     Indication: PULMONARY HYPERTENSION
     Dosage: 2.5 MG, TID
     Route: 048

REACTIONS (1)
  - Pneumonia [Unknown]
